FAERS Safety Report 14442096 (Version 1)
Quarter: 2018Q1

REPORT INFORMATION
  Report Type: Spontaneous
  Country: US (occurrence: US)
  Receive Date: 20180125
  Receipt Date: 20180125
  Transmission Date: 20180509
  Serious: Yes (Life-Threatening, Hospitalization)
  Sender: FDA-Public Use
  Company Number: US-TEVA-2018-US-850265

PATIENT
  Age: 32 Year
  Sex: Female

DRUGS (8)
  1. TIZANIDINE. [Concomitant]
     Active Substance: TIZANIDINE
     Dosage: 4MG 3 TIMES A DAY
     Route: 065
  2. BUSPIRONE [Suspect]
     Active Substance: BUSPIRONE HYDROCHLORIDE
     Indication: MENTAL DISORDER
     Dosage: 15MG THREE TIMES A DAY
     Route: 065
  3. DIAZEPAM. [Concomitant]
     Active Substance: DIAZEPAM
     Dosage: 5MG 3 TIMES A DAY
     Route: 065
  4. SERTRALINE [Suspect]
     Active Substance: SERTRALINE HYDROCHLORIDE
     Indication: MENTAL DISORDER
     Dosage: 100 MG DAILY
     Route: 065
  5. GABAPENTIN. [Concomitant]
     Active Substance: GABAPENTIN
     Dosage: 800MG THREE TIMES A DAY
     Route: 065
  6. ACETAMINOPHEN-HYDROCODONE [Concomitant]
     Active Substance: ACETAMINOPHEN\HYDROCODONE
     Dosage: 5 TO 325MG 1 TO 2 TIMES DAILY
     Route: 065
  7. DIAZEPAM. [Concomitant]
     Active Substance: DIAZEPAM
     Dosage: 2.5MG
  8. LACOSAMIDE. [Concomitant]
     Active Substance: LACOSAMIDE
     Route: 065

REACTIONS (5)
  - Hyperthermia [Recovering/Resolving]
  - Hypotension [Recovering/Resolving]
  - Stiff person syndrome [Recovered/Resolved]
  - Shock [Unknown]
  - Multiple organ dysfunction syndrome [Unknown]
